FAERS Safety Report 18878409 (Version 1)
Quarter: 2021Q1

REPORT INFORMATION
  Report Type: Spontaneous
  Country: US (occurrence: US)
  Receive Date: 20210210
  Receipt Date: 20210210
  Transmission Date: 20210420
  Serious: No
  Sender: FDA-Public Use
  Company Number: None

PATIENT
  Age: 67 Year
  Sex: Male
  Weight: 68.04 kg

DRUGS (4)
  1. TRAZODONE [Concomitant]
     Active Substance: TRAZODONE HYDROCHLORIDE
  2. ELAVIL 20MG [Concomitant]
  3. MULTIVITAMIN [Concomitant]
     Active Substance: VITAMINS
  4. RETAINE MGD [Suspect]
     Active Substance: LIGHT MINERAL OIL\MINERAL OIL

REACTIONS (4)
  - Superficial injury of eye [None]
  - Packaging design issue [None]
  - Product container issue [None]
  - Injury associated with device [None]

NARRATIVE: CASE EVENT DATE: 19210208
